FAERS Safety Report 8365434-1 (Version None)
Quarter: 2012Q2

REPORT INFORMATION
  Report Type: 
  Country: None (occurrence: None)
  Receive Date: 20120516
  Receipt Date: 20120511
  Transmission Date: 20120825
  Serious: Yes (Death, Other)
  Sender: FDA-Public Use
  Company Number: US-AMGEN AB-US383670

PATIENT
  Age: 89 Year
  Sex: Male
  Weight: 53.09 kg

DRUGS (25)
  1. MEGACE ORAL SUSPENSION [Concomitant]
  2. ULTRACET [Concomitant]
  3. NPLATE [Suspect]
     Dates: start: 20091211
  4. DIGOXIN [Concomitant]
     Dosage: .125 MG, QD
     Route: 048
  5. LORATADINE [Concomitant]
     Dosage: 10 MG, QD
  6. SYNTHROID [Concomitant]
     Dosage: 12.5 MUG, QD
  7. DOXAZOSIN MESYLATE [Concomitant]
     Dosage: 1 MG, QD
     Route: 048
  8. TYLENOL PM EXTRA STRENGTH [Concomitant]
     Indication: PAIN
     Dosage: UNK
     Route: 048
  9. MAGNESIUM OXIDE [Concomitant]
     Dosage: 400 MG, QD
     Route: 048
  10. NPLATE [Suspect]
     Indication: IDIOPATHIC THROMBOCYTOPENIC PURPURA
     Dosage: 60 MUG, QWK
     Route: 058
     Dates: start: 20091211
  11. NPLATE [Suspect]
     Dosage: 2 MUG/KG, QWK
     Route: 058
     Dates: start: 20100105, end: 20100917
  12. TRAMADOL HYDROCHLORIDE [Concomitant]
     Dosage: 25 MG, PRN
     Route: 065
  13. SENNA CONCENTRATE [Concomitant]
     Indication: CONSTIPATION
     Dosage: UNK UNK, PRN
     Route: 048
  14. PROPYLENE GLYCOL [Concomitant]
  15. CORTICOSTEROIDS [Concomitant]
     Dosage: UNK
     Dates: start: 20091120, end: 20091203
  16. TYLENOL PM EXTRA STRENGTH [Concomitant]
     Indication: SLEEP DISORDER
  17. METOPROLOL TARTRATE [Concomitant]
     Dosage: 50 MG, BID
     Route: 065
  18. OMEPRAZOLE [Concomitant]
     Dosage: 20 MG, QD
     Route: 048
  19. IRON [Concomitant]
     Dosage: UNK UNK, BID
     Route: 065
  20. REMERON [Concomitant]
     Dosage: 30 MG, QHS
  21. TRAMADOL HCL [Concomitant]
     Dosage: 25 MG, PRN
     Route: 048
  22. FERROUS SULFATE TAB [Concomitant]
     Dosage: 325 MG, QD
  23. TRANDOLAPRIL [Concomitant]
     Dosage: 4 MG, QD
     Route: 048
  24. NITROGLYCERIN [Concomitant]
     Indication: CHEST PAIN
     Dosage: 0.4 MG, PRN
     Route: 060
  25. VIGAMOX [Concomitant]

REACTIONS (10)
  - CARDIAC DEATH [None]
  - CARDIAC FAILURE CONGESTIVE [None]
  - PLATELET COUNT DECREASED [None]
  - FAILURE TO THRIVE [None]
  - MUSCULOSKELETAL PAIN [None]
  - PERIORBITAL HAEMATOMA [None]
  - LEUKOCYTOSIS [None]
  - CACHEXIA [None]
  - CHRONIC OBSTRUCTIVE PULMONARY DISEASE [None]
  - FALL [None]
